FAERS Safety Report 10364588 (Version 1)
Quarter: 2014Q3

REPORT INFORMATION
  Report Type: Spontaneous
  Country: CA (occurrence: CA)
  Receive Date: 20140806
  Receipt Date: 20140806
  Transmission Date: 20150326
  Serious: Yes (Other)
  Sender: FDA-Public Use
  Company Number: CA-JNJFOC-20140714530

PATIENT

DRUGS (4)
  1. VARENICLINE [Suspect]
     Active Substance: VARENICLINE
     Indication: EX-TOBACCO USER
     Route: 065
  2. NICODERM CQ [Suspect]
     Active Substance: NICOTINE
     Indication: SMOKING CESSATION THERAPY
     Route: 065
  3. NRT GUM [Suspect]
     Active Substance: NICOTINE
     Indication: EX-TOBACCO USER
     Route: 065
  4. NRT INHALER [Suspect]
     Active Substance: NICOTINE
     Indication: EX-TOBACCO USER
     Route: 065

REACTIONS (11)
  - Drug withdrawal syndrome [Unknown]
  - Anger [Unknown]
  - Restlessness [Unknown]
  - Disturbance in attention [Unknown]
  - Anxiety [Unknown]
  - Increased appetite [Unknown]
  - Emotional distress [Unknown]
  - Depression [Unknown]
  - Nicotine dependence [Unknown]
  - Suicidal ideation [Unknown]
  - Insomnia [Unknown]
